FAERS Safety Report 7736190-2 (Version None)
Quarter: 2011Q3

REPORT INFORMATION
  Report Type: 
  Country: None (occurrence: None)
  Receive Date: 20110902
  Receipt Date: 20110819
  Transmission Date: 20111222
  Serious: Yes (Death)
  Sender: FDA-Public Use
  Company Number: 1000023187

PATIENT
  Age: 20 Year
  Sex: Female

DRUGS (2)
  1. CITALOPRAM HYDROBROMIDE [Suspect]
     Indication: DEPRESSION
     Dosage: SEE IMAGE ORAL
     Route: 048
     Dates: start: 20070905
  2. CITALOPRAM HYDROBROMIDE [Suspect]
     Indication: DEPRESSION
     Dosage: SEE IMAGE ORAL
     Route: 048
     Dates: start: 20070501, end: 20070801

REACTIONS (3)
  - COMPLETED SUICIDE [None]
  - DRUG INEFFECTIVE [None]
  - ASPHYXIA [None]
